FAERS Safety Report 6389065-8 (Version None)
Quarter: 2009Q4

REPORT INFORMATION
  Report Type: 
  Country: None (occurrence: None)
  Receive Date: 20091006
  Receipt Date: 20080502
  Transmission Date: 20100525
  Serious: Yes (Other)
  Sender: FDA-Public Use
  Company Number: US-ASTRAZENECA-2007UW16857

PATIENT
  Age: 13964 Day
  Sex: Female
  Weight: 74.8 kg

DRUGS (10)
  1. SEROQUEL [Suspect]
     Indication: ANXIETY
     Route: 048
     Dates: start: 20030901, end: 20050901
  2. SEROQUEL [Suspect]
     Indication: DEPRESSION
     Route: 048
     Dates: start: 20030901, end: 20050901
  3. SEROQUEL [Suspect]
     Route: 048
     Dates: start: 20040805
  4. SEROQUEL [Suspect]
     Route: 048
     Dates: start: 20040805
  5. LEXAPRO [Concomitant]
     Indication: DEPRESSION
     Dosage: 10-20 MG
     Route: 048
     Dates: start: 20040823
  6. NEXIUM [Concomitant]
     Indication: GASTROOESOPHAGEAL REFLUX DISEASE
     Route: 048
     Dates: start: 20050919
  7. CARISOPRODOL [Concomitant]
     Route: 048
     Dates: start: 20050919
  8. CLARITIN [Concomitant]
     Indication: SEASONAL ALLERGY
     Route: 048
     Dates: start: 20050919
  9. ZOCOR [Concomitant]
     Indication: HYPERCHOLESTEROLAEMIA
     Route: 048
     Dates: start: 20050919
  10. WELCHOL [Concomitant]
     Route: 048
     Dates: start: 20051206

REACTIONS (6)
  - DIABETES MELLITUS [None]
  - DIABETES MELLITUS INADEQUATE CONTROL [None]
  - DIABETIC NEUROPATHY [None]
  - MUSCULAR WEAKNESS [None]
  - PARAESTHESIA [None]
  - VISION BLURRED [None]
